FAERS Safety Report 4882038-3 (Version None)
Quarter: 2006Q1

REPORT INFORMATION
  Report Type: 
  Country: None (occurrence: None)
  Receive Date: 20060112
  Receipt Date: 20060103
  Transmission Date: 20060701
  Serious: Yes (Other)
  Sender: FDA-Public Use
  Company Number: 2005US001685

PATIENT
  Age: 15 Year
  Sex: Female

DRUGS (2)
  1. PROTOPIC [Suspect]
     Indication: DERMATITIS ATOPIC
     Dates: start: 20010101, end: 20050101
  2. NEORAL [Concomitant]

REACTIONS (3)
  - ALOPECIA [None]
  - MYCOSIS FUNGOIDES [None]
  - SKIN HYPOPIGMENTATION [None]
